FAERS Safety Report 9466724 (Version 1)
Quarter: 2013Q3

REPORT INFORMATION
  Report Type: Spontaneous
  Country: US (occurrence: US)
  Receive Date: 20130820
  Receipt Date: 20130820
  Transmission Date: 20140515
  Serious: No
  Sender: FDA-Public Use
  Company Number: US-TEVA-388273USA

PATIENT
  Sex: Female
  Weight: 57.2 kg

DRUGS (2)
  1. FLUCONAZOLE [Suspect]
     Indication: FUNGAL INFECTION
     Dosage: 28.5714 MILLIGRAM DAILY;
     Route: 048
     Dates: start: 201301
  2. LEVOTHYROXINE [Concomitant]

REACTIONS (3)
  - Limb injury [Unknown]
  - Condition aggravated [Unknown]
  - Plantar fasciitis [Unknown]
